FAERS Safety Report 10724436 (Version 1)
Quarter: 2015Q1

REPORT INFORMATION
  Report Type: Report from Study
  Country: IN (occurrence: IN)
  Receive Date: 20150120
  Receipt Date: 20150120
  Transmission Date: 20150721
  Serious: Yes (Hospitalization)
  Sender: FDA-Public Use
  Company Number: PHHO2014IN016141

PATIENT
  Age: 72 Year
  Sex: Male
  Weight: 62.3 kg

DRUGS (18)
  1. PREDNISONE. [Suspect]
     Active Substance: PREDNISONE
     Dosage: 100 MG, (TABLET)
     Route: 048
     Dates: start: 20141219, end: 20141219
  2. MABTHERA [Suspect]
     Active Substance: RITUXIMAB
     Dosage: CODE NOT BROKEN
     Route: 042
     Dates: start: 20141219, end: 20141219
  3. CYCLOPHOSPHAMIDE. [Suspect]
     Active Substance: CYCLOPHOSPHAMIDE
     Indication: CHEMOTHERAPY
     Dosage: 750 MG/M2, UNK
     Route: 042
     Dates: start: 20141128, end: 20141128
  4. DOMPERIDONE [Concomitant]
     Active Substance: DOMPERIDONE
     Indication: VOMITING
     Dosage: 10 MG, UNK
     Route: 048
     Dates: start: 20141203
  5. FEBUXOSTAT. [Concomitant]
     Active Substance: FEBUXOSTAT
     Indication: PROPHYLAXIS
     Dosage: 40 MG, UNK
     Route: 048
     Dates: start: 20141203
  6. CYCLOPHOSPHAMIDE. [Suspect]
     Active Substance: CYCLOPHOSPHAMIDE
     Dosage: 750 MG/M2, UNK
     Route: 042
     Dates: start: 20141219, end: 20141219
  7. HEXODANE MOUTHWASH [Concomitant]
     Indication: INFECTION
     Dosage: 5-10 ML, MOUTH WASH
     Route: 065
     Dates: start: 20141127
  8. BLINDED NO TREATMENT RECEIVED [Suspect]
     Active Substance: UNSPECIFIED INGREDIENT
     Indication: NON-HODGKIN^S LYMPHOMA
     Dosage: CODE NOT BROKEN
     Route: 042
     Dates: start: 20141128, end: 20141128
  9. VINCRISTINE [Suspect]
     Active Substance: VINCRISTINE
     Dosage: 2 MG/M2, UNK
     Route: 042
     Dates: start: 20141219, end: 20141219
  10. AUTRIN [Concomitant]
     Indication: HAEMOGLOBIN
     Dosage: 1 CAPSULE
     Route: 048
     Dates: start: 20141202
  11. ONDASETRON [Concomitant]
     Indication: VOMITING
     Dosage: 8 MG, UNK
     Route: 048
     Dates: start: 20141203
  12. RITUXAN [Suspect]
     Active Substance: RITUXIMAB
     Indication: NON-HODGKIN^S LYMPHOMA
     Dosage: CODE NOT BROKEN
     Route: 042
     Dates: start: 20141128, end: 20141128
  13. BLINDED NO TREATMENT RECEIVED [Suspect]
     Active Substance: UNSPECIFIED INGREDIENT
     Dosage: CODE NOT BROKEN
     Route: 042
     Dates: start: 20141219, end: 20141219
  14. VINCRISTINE [Suspect]
     Active Substance: VINCRISTINE
     Indication: CHEMOTHERAPY
     Dosage: 2 MG/M2, UNK
     Route: 042
     Dates: start: 20141128, end: 20141128
  15. CLOGEN [Concomitant]
     Indication: FUNGAL INFECTION
     Dosage: 10 MG, UNK
     Route: 048
     Dates: start: 20141127
  16. MABTHERA [Suspect]
     Active Substance: RITUXIMAB
     Indication: NON-HODGKIN^S LYMPHOMA
     Dosage: CODE NOT BROKEN
     Route: 042
     Dates: start: 20141128, end: 20141128
  17. RITUXAN [Suspect]
     Active Substance: RITUXIMAB
     Dosage: CODE NOT BROKEN
     Route: 042
     Dates: start: 20141219, end: 20141219
  18. PREDNISONE. [Suspect]
     Active Substance: PREDNISONE
     Indication: CHEMOTHERAPY
     Dosage: 100 MG, (TABLET)
     Route: 048
     Dates: start: 20141128, end: 20141128

REACTIONS (3)
  - Mouth ulceration [Recovering/Resolving]
  - Febrile neutropenia [Recovered/Resolved]
  - Pyrexia [Recovering/Resolving]

NARRATIVE: CASE EVENT DATE: 20141204
